FAERS Safety Report 7937077-2 (Version None)
Quarter: 2011Q4

REPORT INFORMATION
  Report Type: 
  Country: None (occurrence: None)
  Receive Date: 20111123
  Receipt Date: 20111116
  Transmission Date: 20120403
  Serious: Yes (Hospitalization)
  Sender: FDA-Public Use
  Company Number: US-ACTELION-A-US2011-57197

PATIENT

DRUGS (11)
  1. REVATIO [Concomitant]
  2. GLEEVEC [Concomitant]
  3. FLOLAN [Concomitant]
  4. POLYSACCHARIDE-IRON COMPLEX [Concomitant]
  5. TRACLEER [Suspect]
     Indication: PULMONARY ARTERIAL HYPERTENSION
     Dosage: 125 MG, BID
     Route: 048
     Dates: start: 20040101
  6. TRACLEER [Suspect]
     Dosage: 31.25 MG, UNK
     Route: 048
     Dates: start: 20031121
  7. ZOLOFT [Concomitant]
  8. ASCORBIC ACID [Concomitant]
  9. FUROSEMIDE [Concomitant]
  10. XOPENEX [Concomitant]
  11. FOLIC ACID [Concomitant]

REACTIONS (4)
  - TOURETTE'S DISORDER [None]
  - TIC [None]
  - HAEMOGLOBIN DECREASED [None]
  - MINERAL SUPPLEMENTATION [None]
